FAERS Safety Report 7693259-9 (Version None)
Quarter: 2011Q3

REPORT INFORMATION
  Report Type: 
  Country: None (occurrence: None)
  Receive Date: 20110819
  Receipt Date: 20110805
  Transmission Date: 20111222
  Serious: Yes (Other)
  Sender: FDA-Public Use
  Company Number: US-UCBSA-037261

PATIENT
  Sex: Female
  Weight: 84.8 kg

DRUGS (5)
  1. MERCAPTOPURINE [Concomitant]
     Indication: CROHN'S DISEASE
     Dates: start: 20110110
  2. APRISO [Concomitant]
     Indication: CROHN'S DISEASE
     Dates: start: 20101124
  3. CIMZIA [Suspect]
     Indication: CROHN'S DISEASE
     Route: 058
     Dates: start: 20110201, end: 20110101
  4. PREDNISONE [Concomitant]
     Dosage: TAPER
     Dates: start: 20101124, end: 20110224
  5. PREDNISONE [Concomitant]
     Dates: start: 20100311

REACTIONS (1)
  - EYE SWELLING [None]
